FAERS Safety Report 8976002 (Version 1)
Quarter: 2012Q4

REPORT INFORMATION
  Report Type: Report from Study
  Country: DE (occurrence: DE)
  Receive Date: 20121219
  Receipt Date: 20121219
  Transmission Date: 20130627
  Serious: Yes (Hospitalization)
  Sender: FDA-Public Use
  Company Number: DE-ACTELION-A-US2012-76503

PATIENT
  Age: 77 Year
  Sex: Male

DRUGS (2)
  1. VENTAVIS [Suspect]
     Indication: PULMONARY ARTERIAL HYPERTENSION
     Dosage: 2.5 ?g, q4hrs
     Route: 055
     Dates: start: 20111215
  2. VENTAVIS [Suspect]
     Dosage: 2.5 ?g, q4hrs
     Route: 055
     Dates: start: 201212

REACTIONS (3)
  - Medical device implantation [Recovered/Resolved]
  - Dry throat [Unknown]
  - Throat irritation [Unknown]
